FAERS Safety Report 8231678-2 (Version None)
Quarter: 2012Q1

REPORT INFORMATION
  Report Type: 
  Country: None (occurrence: None)
  Receive Date: 20120323
  Receipt Date: 20120312
  Transmission Date: 20120608
  Serious: Yes (Life-Threatening)
  Sender: FDA-Public Use
  Company Number: JP-MILLENNIUM PHARMACEUTICALS, INC.-2012-00570

PATIENT

DRUGS (19)
  1. MAGMITT [Concomitant]
     Indication: MULTIPLE MYELOMA
     Dosage: 990 MG, UNK
     Route: 048
     Dates: start: 20120111
  2. OXYCONTIN [Concomitant]
     Indication: MULTIPLE MYELOMA
     Dosage: 10 MG, UNK
     Route: 048
     Dates: start: 20120116, end: 20120121
  3. GOSHAJINKIGAN [Concomitant]
     Indication: MULTIPLE MYELOMA
     Dosage: 7.5 G, UNK
     Route: 048
     Dates: start: 20120117
  4. ITRACONAZOLE [Concomitant]
     Indication: MULTIPLE MYELOMA
     Dosage: 20 ML, UNK
     Route: 048
     Dates: start: 20120111
  5. SELBEX [Concomitant]
     Indication: MULTIPLE MYELOMA
     Dosage: 1.5 G, UNK
     Route: 048
     Dates: start: 20120117
  6. VALTREX [Concomitant]
     Indication: MULTIPLE MYELOMA
     Dosage: 250 MG, UNK
     Route: 048
     Dates: start: 20120117
  7. LEVOFLOXACIN [Concomitant]
     Indication: MULTIPLE MYELOMA
     Dosage: 500 MG, UNK
     Route: 048
     Dates: start: 20120112, end: 20120209
  8. METHYLPREDNISOLONE [Concomitant]
     Dosage: 20 MG, UNK
     Route: 048
     Dates: start: 20120214
  9. METHYLPREDNISOLONE [Concomitant]
     Indication: LUNG DISORDER
     Dosage: 55 MG, UNK
     Route: 048
     Dates: start: 20120114, end: 20120206
  10. DEXAMETHASONE [Concomitant]
     Indication: MULTIPLE MYELOMA
     Dosage: 19.8 MG, UNK
     Route: 042
     Dates: start: 20120117, end: 20120117
  11. VELCADE [Suspect]
     Indication: MULTIPLE MYELOMA
     Dosage: 2 MG, UNK
     Route: 042
     Dates: start: 20120117, end: 20120117
  12. MIYA-BM [Concomitant]
     Indication: MULTIPLE MYELOMA
     Dosage: 3 G, UNK
     Route: 048
     Dates: start: 20120112
  13. GAMOFA [Concomitant]
     Indication: MULTIPLE MYELOMA
     Dosage: 40 MG, UNK
     Route: 048
     Dates: start: 20120112, end: 20120121
  14. FUROSEMIDE [Concomitant]
     Indication: CONGESTIVE CARDIOMYOPATHY
     Dosage: 20 MG, UNK
     Route: 048
     Dates: start: 20021110
  15. METHYLPREDNISOLONE [Concomitant]
     Dosage: 30 MG, UNK
     Route: 048
     Dates: start: 20120207, end: 20120213
  16. METHYCOBAL                         /00324901/ [Concomitant]
     Indication: MULTIPLE MYELOMA
     Dosage: 1500 MG, UNK
     Route: 048
     Dates: start: 20120117
  17. NOVAMIN                            /00013301/ [Concomitant]
     Indication: MULTIPLE MYELOMA
     Dosage: 15 MG, UNK
     Route: 048
     Dates: start: 20120116, end: 20120121
  18. ZYLORIC                            /00003301/ [Concomitant]
     Indication: MULTIPLE MYELOMA
     Dosage: 100 MG, UNK
     Route: 048
     Dates: start: 20120108
  19. COTRIM [Concomitant]
     Indication: MULTIPLE MYELOMA
     Dosage: 1 DF, UNK
     Route: 048
     Dates: start: 20120111

REACTIONS (1)
  - LUNG DISORDER [None]
